FAERS Safety Report 18761681 (Version 1)
Quarter: 2021Q1

REPORT INFORMATION
  Report Type: Spontaneous
  Country: US (occurrence: US)
  Receive Date: 20210118
  Receipt Date: 20210118
  Transmission Date: 20210419
  Serious: Yes (Death)
  Sender: FDA-Public Use
  Company Number: None

PATIENT
  Age: 31 Year
  Sex: Male

DRUGS (9)
  1. SPIRONOLACTONE. [Concomitant]
     Active Substance: SPIRONOLACTONE
  2. METHOCARBAMOL. [Concomitant]
     Active Substance: METHOCARBAMOL
  3. BUMETANIDE. [Concomitant]
     Active Substance: BUMETANIDE
  4. CYCLOBENZAPRINE. [Concomitant]
     Active Substance: CYCLOBENZAPRINE
  5. METOPROLOL. [Concomitant]
     Active Substance: METOPROLOL
  6. K?TAB [Concomitant]
     Active Substance: POTASSIUM CHLORIDE
  7. SILDENAFIL. [Concomitant]
     Active Substance: SILDENAFIL
  8. OPSUMIT [Suspect]
     Active Substance: MACITENTAN
     Indication: PULMONARY HYPERTENSION
     Route: 048
     Dates: start: 20190506, end: 20201215
  9. METOLAZONE. [Concomitant]
     Active Substance: METOLAZONE

REACTIONS (7)
  - Hypokalaemia [None]
  - Atrial fibrillation [None]
  - Cardiac arrest [None]
  - Palpitations [None]
  - Refusal of treatment by patient [None]
  - Ventricular tachycardia [None]
  - SARS-CoV-2 test positive [None]

NARRATIVE: CASE EVENT DATE: 20201215
